FAERS Safety Report 11946331 (Version 1)
Quarter: 2016Q1

REPORT INFORMATION
  Report Type: Spontaneous
  Country: US (occurrence: US)
  Receive Date: 20160125
  Receipt Date: 20160125
  Transmission Date: 20160526
  Serious: No
  Sender: FDA-Public Use
  Company Number: US-JNJFOC-20151218966

PATIENT
  Age: 41 Year
  Sex: Female
  Weight: 61.24 kg

DRUGS (3)
  1. MENS ROGAINE EXTRA STRENGTH [Suspect]
     Active Substance: MINOXIDIL
     Route: 061
  2. BIOTIN [Concomitant]
     Active Substance: BIOTIN
     Indication: HAIR GROWTH ABNORMAL
     Route: 065
  3. MENS ROGAINE EXTRA STRENGTH [Suspect]
     Active Substance: MINOXIDIL
     Indication: ALOPECIA
     Dosage: 1/2 CAPFUL
     Route: 061
     Dates: start: 20150430, end: 20150629

REACTIONS (7)
  - Application site reaction [Recovered/Resolved]
  - Application site pain [Recovered/Resolved]
  - Contraindication to medical treatment [Recovered/Resolved]
  - Off label use [Recovered/Resolved]
  - Hypersensitivity [Recovering/Resolving]
  - Alopecia [Not Recovered/Not Resolved]
  - Drug prescribing error [Recovered/Resolved]
